FAERS Safety Report 6027446-2 (Version None)
Quarter: 2009Q1

REPORT INFORMATION
  Report Type: 
  Country: None (occurrence: None)
  Receive Date: 20090105
  Receipt Date: 20081229
  Transmission Date: 20090719
  Serious: Yes (Hospitalization)
  Sender: FDA-Public Use
  Company Number: TR-SANOFI-SYNTHELABO-F01200801982

PATIENT
  Sex: Male

DRUGS (5)
  1. ONDANSETRON [Concomitant]
     Dosage: UNK
     Route: 065
  2. CAPECITABINE [Suspect]
     Dosage: 3300 MG
     Route: 048
  3. BEVACIZUMAB [Suspect]
     Dosage: 495 MG
     Route: 042
  4. DEXAMETHASONE [Concomitant]
     Dosage: UNK
     Route: 065
  5. OXALIPLATIN [Suspect]
     Indication: COLORECTAL CANCER METASTATIC
     Dosage: 220 MG
     Route: 042

REACTIONS (1)
  - PNEUMONIA ASPIRATION [None]
